FAERS Safety Report 6540987-4 (Version None)
Quarter: 2010Q1

REPORT INFORMATION
  Report Type: 
  Country: None (occurrence: None)
  Receive Date: 20100118
  Receipt Date: 20100107
  Transmission Date: 20100710
  Serious: Yes (Hospitalization)
  Sender: FDA-Public Use
  Company Number: PHEH2009US16291

PATIENT
  Sex: Male

DRUGS (14)
  1. TASIGNA [Suspect]
     Indication: CHRONIC MYELOID LEUKAEMIA
     Dosage: 400 MG, BID
     Route: 048
  2. LIPID MODIFYING AGENTS [Concomitant]
  3. INSULIN [Concomitant]
     Indication: DIABETES MELLITUS
     Dosage: SS
  4. FLOMAX [Concomitant]
     Indication: BENIGN PROSTATIC HYPERPLASIA
     Dosage: 0.4 MG, QD
  5. NEXIUM [Concomitant]
     Indication: GASTROOESOPHAGEAL REFLUX DISEASE
     Dosage: 40 MG, UNK
  6. LEXAPRO [Concomitant]
     Indication: DEPRESSION
     Dosage: 10 MG, QD
  7. AZMACORT [Concomitant]
     Indication: ASTHMA
     Dosage: 2 PUFFS, QD
  8. IRON [Concomitant]
     Indication: ANAEMIA
     Dosage: 375 MG, UNK
  9. SYNTHROID [Concomitant]
     Indication: HYPOTHYROIDISM
     Dosage: 75 UG, QD
  10. VITAMIN B-12 [Concomitant]
     Indication: ANAEMIA
     Dosage: 1000 UG, QD
  11. ZOCOR [Concomitant]
     Indication: HYPERLIPIDAEMIA
     Dosage: 40 MG, QD
  12. LOPRESSOR [Concomitant]
     Indication: CARDIAC FAILURE CONGESTIVE
     Dosage: 25 MG DAILY
  13. NORVASC [Concomitant]
     Indication: HYPERTENSION
     Dosage: 10 MG DAILY
  14. PLAVIX [Concomitant]
     Indication: CARDIOVASCULAR DISORDER
     Dosage: 75 MG DAILY
     Route: 048

REACTIONS (4)
  - ANGINA PECTORIS [None]
  - BLOOD GLUCOSE INCREASED [None]
  - CHRONIC MYELOID LEUKAEMIA [None]
  - DYSPNOEA [None]
